FAERS Safety Report 9419976 (Version 1)
Quarter: 2013Q3

REPORT INFORMATION
  Report Type: Spontaneous
  Country: US (occurrence: US)
  Receive Date: 20130725
  Receipt Date: 20130725
  Transmission Date: 20140515
  Serious: Yes (Other)
  Sender: FDA-Public Use
  Company Number: US-JNJFOC-20130712265

PATIENT
  Sex: Female
  Weight: 107.05 kg

DRUGS (2)
  1. TOPAMAX [Suspect]
     Indication: MENIERE^S DISEASE
     Route: 048
     Dates: start: 2013
  2. HUMIRA [Suspect]
     Indication: PSORIATIC ARTHROPATHY
     Route: 065
     Dates: start: 201201

REACTIONS (4)
  - Osteoarthritis [Unknown]
  - Psoriasis [Unknown]
  - Weight decreased [Unknown]
  - Off label use [Unknown]
